FAERS Safety Report 20031452 (Version 1)
Quarter: 2021Q4

REPORT INFORMATION
  Report Type: Spontaneous
  Country: CA (occurrence: CA)
  Receive Date: 20211103
  Receipt Date: 20211103
  Transmission Date: 20220303
  Serious: Yes (Hospitalization, Other)
  Sender: FDA-Public Use
  Company Number: CA-TEVA-2021-CA-1971352

PATIENT
  Age: 68 Year
  Sex: Male
  Weight: 75 kg

DRUGS (26)
  1. ROSUVASTATIN CALCIUM [Suspect]
     Active Substance: ROSUVASTATIN CALCIUM
     Indication: Dyslipidaemia
     Route: 048
  2. ROSUVASTATIN CALCIUM [Suspect]
     Active Substance: ROSUVASTATIN CALCIUM
     Route: 065
  3. ROSUVASTATIN CALCIUM [Suspect]
     Active Substance: ROSUVASTATIN CALCIUM
     Route: 048
  4. AMOXICILLIN AND CLAVULANATE POTASSIUM [Suspect]
     Active Substance: AMOXICILLIN\CLAVULANATE POTASSIUM
     Indication: Wound necrosis
     Route: 048
  5. AMOXICILLIN AND CLAVULANATE POTASSIUM [Suspect]
     Active Substance: AMOXICILLIN\CLAVULANATE POTASSIUM
     Indication: Wound infection
     Route: 048
  6. AMLODIPINE MESYLATE [Concomitant]
     Active Substance: AMLODIPINE MESYLATE
     Route: 065
  7. ASPIRIN [Concomitant]
     Active Substance: ASPIRIN
     Route: 065
  8. BETACAROTENE/ BIOTIN/CALCIUM CARBONATE/CALCIUM DPANTOTHENATE/ CHROMIC [Concomitant]
     Route: 065
  9. CALCIUM [Concomitant]
     Active Substance: CALCIUM
     Route: 065
  10. CYCLOSPORINE [Concomitant]
     Active Substance: CYCLOSPORINE
     Route: 065
  11. CITALOPRAM HYDROBROMIDE [Concomitant]
     Active Substance: CITALOPRAM HYDROBROMIDE
     Route: 065
  12. CLINDAMYCIN PHOSPHATE [Concomitant]
     Active Substance: CLINDAMYCIN PHOSPHATE
     Route: 065
  13. COBAMAMIDE [Concomitant]
     Active Substance: COBAMAMIDE
     Route: 065
  14. DILAUDID [Concomitant]
     Active Substance: HYDROMORPHONE HYDROCHLORIDE
     Route: 065
  15. FUROSEMIDE [Concomitant]
     Active Substance: FUROSEMIDE
     Route: 065
  16. INSULIN INJECTION HUMAN BIOSYNTHETIC [Concomitant]
     Route: 065
  17. KAYEXALATE [Concomitant]
     Active Substance: SODIUM POLYSTYRENE SULFONATE
     Route: 065
  18. LACTULOSE [Concomitant]
     Active Substance: LACTULOSE
     Route: 065
  19. LORAZEPAM [Concomitant]
     Active Substance: LORAZEPAM
     Route: 065
  20. METHADONE HYDROCHLORIDE [Concomitant]
     Active Substance: METHADONE HYDROCHLORIDE
     Route: 065
  21. PENICILLIN [Concomitant]
     Active Substance: PENICILLIN
     Route: 065
  22. RIFAXIMIN [Concomitant]
     Active Substance: RIFAXIMIN
     Route: 065
  23. SODIUM BENZOATE [Concomitant]
     Active Substance: SODIUM BENZOATE
     Route: 065
  24. TAMSULOSIN [Concomitant]
     Active Substance: TAMSULOSIN
     Route: 065
  25. VITAMIN B1 [Concomitant]
     Active Substance: THIAMINE HYDROCHLORIDE
     Route: 065
  26. VITAMIN D [Concomitant]
     Active Substance: VITAMIN D NOS
     Route: 065

REACTIONS (6)
  - Biopsy liver [Unknown]
  - Cholestasis [Unknown]
  - Hepatocellular injury [Unknown]
  - Drug-induced liver injury [Unknown]
  - Alanine aminotransferase increased [Unknown]
  - Blood alkaline phosphatase increased [Unknown]
